FAERS Safety Report 8047428-9 (Version None)
Quarter: 2012Q1

REPORT INFORMATION
  Report Type: 
  Country: None (occurrence: None)
  Receive Date: 20120116
  Receipt Date: 20120112
  Transmission Date: 20120608
  Serious: Yes (Death, Hospitalization)
  Sender: FDA-Public Use
  Company Number: US-BRISTOL-MYERS SQUIBB COMPANY-15545684

PATIENT
  Age: 60 Year
  Sex: Female
  Weight: 61 kg

DRUGS (7)
  1. LISINOPRIL [Concomitant]
  2. ATENOLOL [Concomitant]
  3. PACLITAXEL [Suspect]
     Indication: NON-SMALL CELL LUNG CANCER
     Dosage: OVER 3 HRS DAY 1,22
     Route: 042
     Dates: start: 20100520, end: 20100610
  4. CARBOPLATIN [Suspect]
     Indication: NON-SMALL CELL LUNG CANCER
     Dosage: 1 DF: 6 AUC
     Route: 042
     Dates: start: 20100520, end: 20100610
  5. XANAX [Concomitant]
  6. CETUXIMAB [Suspect]
     Indication: NON-SMALL CELL LUNG CANCER
     Dosage: DAY 1 400MG/M2 LOAD DOSE,250MG/M2 DAY 8,15,22,29,36 CYCLE 1,CYCLE 2:1,8,15,22,29,35 LAST:24JUN10.
     Route: 042
     Dates: start: 20100520, end: 20100624
  7. PROCHLORPERAZINE MALEATE [Concomitant]

REACTIONS (3)
  - DEATH [None]
  - ANAEMIA [None]
  - FATIGUE [None]
